FAERS Safety Report 7526563-5 (Version None)
Quarter: 2011Q2

REPORT INFORMATION
  Report Type: 
  Country: None (occurrence: None)
  Receive Date: 20110606
  Receipt Date: 20110524
  Transmission Date: 20111010
  Serious: Yes (Hospitalization)
  Sender: FDA-Public Use
  Company Number: US-ELI_LILLY_AND_COMPANY-US201104003264

PATIENT
  Sex: Female

DRUGS (2)
  1. FORTEO [Suspect]
     Indication: OSTEOPOROSIS
     Dosage: 20 UG, QD
     Route: 065
     Dates: start: 20101215
  2. FORTEO [Suspect]
     Dosage: 20 UG, QD

REACTIONS (7)
  - DIVERTICULITIS [None]
  - HEADACHE [None]
  - ORAL DISCOMFORT [None]
  - FATIGUE [None]
  - ABDOMINAL PAIN [None]
  - ASTHENIA [None]
  - MUSCULOSKELETAL DISCOMFORT [None]
